FAERS Safety Report 25651059 (Version 1)
Quarter: 2025Q3

REPORT INFORMATION
  Report Type: Spontaneous
  Country: US (occurrence: US)
  Receive Date: 20250806
  Receipt Date: 20250806
  Transmission Date: 20251020
  Serious: Yes (Hospitalization, Other)
  Sender: JOHNSON AND JOHNSON
  Company Number: US-JNJFOC-20250736232

PATIENT
  Sex: Female

DRUGS (1)
  1. AMIVANTAMAB [Suspect]
     Active Substance: AMIVANTAMAB
     Indication: Product used for unknown indication
     Dates: start: 20250724, end: 20250725

REACTIONS (3)
  - Ischaemic stroke [Not Recovered/Not Resolved]
  - Infusion related reaction [Unknown]
  - Deep vein thrombosis [Not Recovered/Not Resolved]
